FAERS Safety Report 10299313 (Version 2)
Quarter: 2014Q4

REPORT INFORMATION
  Report Type: Spontaneous
  Country: US (occurrence: US)
  Receive Date: 20140711
  Receipt Date: 20141003
  Transmission Date: 20150528
  Serious: Yes (Hospitalization)
  Sender: FDA-Public Use
  Company Number: PHHY2014US084143

PATIENT
  Age: 57 Year
  Sex: Female

DRUGS (5)
  1. CITALOPRAM [Suspect]
     Active Substance: CITALOPRAM HYDROBROMIDE
     Dosage: 40 MG, UNK
  2. BUPROPION [Concomitant]
     Active Substance: BUPROPION
     Indication: DEPRESSION
     Dosage: 200 MG, BID
  3. CITALOPRAM [Suspect]
     Active Substance: CITALOPRAM HYDROBROMIDE
     Dosage: 60 MG, UNK
  4. BUPRENORPHINE [Suspect]
     Active Substance: BUPRENORPHINE
     Indication: DRUG DEPENDENCE
     Dosage: 8 MG, TID
  5. MIRTAZAPINE. [Concomitant]
     Active Substance: MIRTAZAPINE
     Indication: DEPRESSION
     Dosage: 15 MG, UNK

REACTIONS (19)
  - Confusional state [Recovered/Resolved]
  - Seizure [Recovered/Resolved]
  - Tachycardia [Recovered/Resolved]
  - Clonus [Recovered/Resolved]
  - Headache [Recovering/Resolving]
  - Blood pressure abnormal [Recovered/Resolved]
  - Hyperreflexia [Recovered/Resolved]
  - Dizziness [Recovered/Resolved]
  - Posturing [Recovered/Resolved]
  - Reversible cerebral vasoconstriction syndrome [Recovered/Resolved]
  - Unresponsive to stimuli [Recovered/Resolved]
  - Haemodynamic instability [Recovered/Resolved]
  - Cerebral infarction [Recovering/Resolving]
  - Pyrexia [Recovered/Resolved]
  - Hemiparesis [Recovering/Resolving]
  - Serotonin syndrome [Recovered/Resolved]
  - Hyperhidrosis [Recovered/Resolved]
  - Muscle rigidity [Recovered/Resolved]
  - Brain oedema [Recovering/Resolving]
